FAERS Safety Report 24435213 (Version 1)
Quarter: 2024Q4

REPORT INFORMATION
  Report Type: Spontaneous
  Country: MY (occurrence: MY)
  Receive Date: 20241015
  Receipt Date: 20241015
  Transmission Date: 20250115
  Serious: Yes (Hospitalization)
  Sender: CHEPLAPHARM
  Company Number: None

PATIENT
  Age: 50 Year
  Sex: Male

DRUGS (5)
  1. OLANZAPINE [Interacting]
     Active Substance: OLANZAPINE
     Indication: Bipolar disorder
     Dosage: STARTED MORE THAN A YEAR AGO, AND THERE WAS NO RECENT CHANGE IN DOSAGE
  2. OLANZAPINE [Interacting]
     Active Substance: OLANZAPINE
     Indication: Bipolar disorder
     Dosage: MONOTHERAPY-LOW DOSE OLANZAPINE (5 MG ONCE DAILY)?DAILY DOSE: 5 MILLIGRAM
  3. LITHIUM [Interacting]
     Active Substance: LITHIUM
     Indication: Toxicity to various agents
     Dosage: STARTED MORE THAN A YEAR AGO, AND THERE WAS NO RECENT CHANGE IN DOSAGE
  4. LITHIUM [Interacting]
     Active Substance: LITHIUM
     Indication: Bipolar disorder
     Dosage: STARTED MORE THAN A YEAR AGO, AND THERE WAS NO RECENT CHANGE IN DOSAGE
  5. TRIHEXYPHENIDYL [Interacting]
     Active Substance: TRIHEXYPHENIDYL
     Indication: Bipolar disorder
     Dosage: STARTED MORE THAN A YEAR AGO, AND THERE WAS NO RECENT CHANGE IN DOSAGE

REACTIONS (7)
  - Neuroleptic malignant syndrome [Recovered/Resolved]
  - Acute kidney injury [Unknown]
  - Drug interaction [Recovered/Resolved]
  - Neurotoxicity [Unknown]
  - Gastroenteritis viral [Unknown]
  - Hypernatraemia [Unknown]
  - Hyperkalaemia [Unknown]
